FAERS Safety Report 10952828 (Version 1)
Quarter: 2015Q1

REPORT INFORMATION
  Report Type: Spontaneous
  Country: US (occurrence: None)
  Receive Date: 20150324
  Receipt Date: 20150324
  Transmission Date: 20150721
  Serious: No
  Sender: FDA-Public Use
  Company Number: None

PATIENT
  Age: 64 Year
  Sex: Female
  Weight: 63.5 kg

DRUGS (3)
  1. ATORVASTATIN 20 MG WALMART [Suspect]
     Active Substance: ATORVASTATIN
     Indication: LOW DENSITY LIPOPROTEIN INCREASED
     Route: 048
  2. OMEPRAZOLE 40 MG DAILY [Concomitant]
  3. ALLEGRA 180MG TWICE DAILY [Concomitant]

REACTIONS (8)
  - Contusion [None]
  - Eye pruritus [None]
  - Eye swelling [None]
  - Product substitution issue [None]
  - Pruritus generalised [None]
  - Hypersensitivity [None]
  - Swelling [None]
  - Product quality issue [None]

NARRATIVE: CASE EVENT DATE: 20150226
